FAERS Safety Report 23433453 (Version 1)
Quarter: 2024Q1

REPORT INFORMATION
  Report Type: Other
  Country: US (occurrence: None)
  Receive Date: 20240123
  Receipt Date: 20240123
  Transmission Date: 20240410
  Serious: No
  Sender: FDA-Public Use
  Company Number: US-ROCHE-3496834

PATIENT
  Age: 45 Year
  Sex: Female
  Weight: 90.8 kg

DRUGS (1)
  1. OCREVUS [Suspect]
     Active Substance: OCRELIZUMAB
     Indication: Relapsing-remitting multiple sclerosis
     Dosage: DATE OF TREATMENT WAS 05/DEC/2022, 28/NOV/2022, 23/MAY/2022, 20/MAY/2022, 06/MAY/2022, 02/MAY/2022,
     Route: 042
     Dates: start: 2022

REACTIONS (2)
  - Brain fog [Not Recovered/Not Resolved]
  - COVID-19 [Unknown]

NARRATIVE: CASE EVENT DATE: 20231201
